FAERS Safety Report 7412012-4 (Version None)
Quarter: 2011Q2

REPORT INFORMATION
  Report Type: 
  Country: None (occurrence: None)
  Receive Date: 20110413
  Receipt Date: 20110406
  Transmission Date: 20111010
  Serious: Yes (Disabling, Other)
  Sender: FDA-Public Use
  Company Number: US-BAXTER-2009BH018706

PATIENT
  Age: 56 Year
  Sex: Female
  Weight: 65 kg

DRUGS (2)
  1. HEPARIN SODIUM INJECTION [Suspect]
     Indication: ANTICOAGULANT THERAPY
     Route: 065
     Dates: start: 20071101
  2. HEPARIN SODIUM INJECTION [Suspect]
     Route: 065
     Dates: start: 20071126

REACTIONS (5)
  - FATIGUE [None]
  - THROMBOSIS [None]
  - DRUG INEFFECTIVE [None]
  - MUSCULOSKELETAL DISORDER [None]
  - NAUSEA [None]
